FAERS Safety Report 8034356-8 (Version None)
Quarter: 2012Q1

REPORT INFORMATION
  Report Type: 
  Country: None (occurrence: None)
  Receive Date: 20120110
  Receipt Date: 20111222
  Transmission Date: 20120608
  Serious: Yes (Other)
  Sender: FDA-Public Use
  Company Number: PHHY2011FR114755

PATIENT
  Sex: Male

DRUGS (6)
  1. PIPERACILLIN AND TAZOBACTAM [Suspect]
     Dosage: UNK
     Dates: start: 20100305, end: 20100326
  2. GANCICLOVIR SODIUM [Suspect]
     Dosage: UNK
     Dates: start: 20100312, end: 20100330
  3. VFEND [Suspect]
     Dosage: UNK
     Dates: start: 20100309, end: 20100315
  4. VANCOMYCIN HCL [Suspect]
     Dosage: UNK
     Route: 042
     Dates: start: 20100305, end: 20100316
  5. ACYCLOVIR [Suspect]
     Dosage: UNK
     Route: 042
     Dates: start: 20100312, end: 20100322
  6. CANCIDAS [Concomitant]
     Dosage: UNK
     Dates: start: 20100315, end: 20101012

REACTIONS (5)
  - CHOLESTASIS [None]
  - INTESTINAL OBSTRUCTION [None]
  - NEUTROPENIC COLITIS [None]
  - DEHYDRATION [None]
  - RENAL IMPAIRMENT [None]
